FAERS Safety Report 23948835 (Version 1)
Quarter: 2024Q2

REPORT INFORMATION
  Report Type: Spontaneous
  Country: GB (occurrence: GB)
  Receive Date: 20240607
  Receipt Date: 20240607
  Transmission Date: 20240715
  Serious: Yes (Death, Hospitalization, Other)
  Sender: FDA-Public Use
  Company Number: None

PATIENT
  Sex: Male

DRUGS (13)
  1. CAPECITABINE [Suspect]
     Active Substance: CAPECITABINE
     Indication: Pancreatic neuroendocrine tumour
     Dosage: TWICE DAILY/FIRST-LINE TREATMENT
  2. CAPECITABINE [Suspect]
     Active Substance: CAPECITABINE
     Indication: Pancreatic neuroendocrine tumour
  3. OLANZAPINE [Suspect]
     Active Substance: OLANZAPINE
     Dosage: UNK
  4. TEMODAL [Suspect]
     Active Substance: TEMOZOLOMIDE
     Indication: Pancreatic neuroendocrine tumour
     Dosage: FIRST-LINE TREATMENT
  5. TEMODAL [Suspect]
     Active Substance: TEMOZOLOMIDE
     Indication: Myelosuppression
     Dosage: FIRST-LINE TREATMENT
  6. TEMODAL [Suspect]
     Active Substance: TEMOZOLOMIDE
     Indication: Psoas abscess
     Dosage: FIRST-LINE TREATMENT
  7. TEMODAL [Suspect]
     Active Substance: TEMOZOLOMIDE
     Indication: Pancreatic neuroendocrine tumour
     Dosage: OVERDOSE OF TEMOZOLOMIDE (TEMODAL) OVER A TWO-DAY PERIOD (AT 640 MG IN TOTAL ON DAY ONE, AND 630 ...
  8. TEMODAL [Suspect]
     Active Substance: TEMOZOLOMIDE
     Indication: Myelosuppression
     Dosage: OVERDOSE OF TEMOZOLOMIDE (TEMODAL) OVER A TWO-DAY PERIOD (AT 640 MG IN TOTAL ON DAY ONE, AND 630 ...
  9. TEMODAL [Suspect]
     Active Substance: TEMOZOLOMIDE
     Indication: Psoas abscess
     Dosage: OVERDOSE OF TEMOZOLOMIDE (TEMODAL) OVER A TWO-DAY PERIOD (AT 640 MG IN TOTAL ON DAY ONE, AND 630 ...
  10. TEMODAL [Suspect]
     Active Substance: TEMOZOLOMIDE
     Indication: Pancreatic neuroendocrine tumour
  11. TEMODAL [Suspect]
     Active Substance: TEMOZOLOMIDE
     Indication: Myelosuppression
  12. TEMODAL [Suspect]
     Active Substance: TEMOZOLOMIDE
     Indication: Psoas abscess
  13. PIPERACILLIN SODIUM\TAZOBACTAM SODIUM [Suspect]
     Active Substance: PIPERACILLIN SODIUM\TAZOBACTAM SODIUM
     Indication: Pancreatic neuroendocrine tumour
     Dosage: UNK

REACTIONS (8)
  - Arrhythmia [Fatal]
  - Malignant neoplasm progression [Not Recovered/Not Resolved]
  - Cardiotoxicity [Not Recovered/Not Resolved]
  - Sepsis [Not Recovered/Not Resolved]
  - Electrolyte imbalance [Not Recovered/Not Resolved]
  - Hypocalcaemia [Not Recovered/Not Resolved]
  - Product administration error [Not Recovered/Not Resolved]
  - Product use in unapproved indication [Not Recovered/Not Resolved]
